FAERS Safety Report 24378872 (Version 1)
Quarter: 2024Q3

REPORT INFORMATION
  Report Type: Report from Study
  Country: US (occurrence: US)
  Receive Date: 20240930
  Receipt Date: 20240930
  Transmission Date: 20241016
  Serious: Yes (Death)
  Sender: INSMED
  Company Number: US-INSMED, INC.-2024-00015-US

PATIENT
  Age: 62 Year
  Sex: Male

DRUGS (1)
  1. ARIKAYCE [Suspect]
     Active Substance: AMIKACIN
     Indication: Mycobacterial infection
     Dosage: 590 MILLIGRAM, QD
     Route: 055
     Dates: start: 202312

REACTIONS (6)
  - Death [Fatal]
  - Secretion discharge [Not Recovered/Not Resolved]
  - Condition aggravated [Unknown]
  - Increased viscosity of bronchial secretion [Unknown]
  - Sputum retention [Unknown]
  - Dyspnoea [Not Recovered/Not Resolved]

NARRATIVE: CASE EVENT DATE: 20231201
